FAERS Safety Report 5495711-3 (Version None)
Quarter: 2007Q4

REPORT INFORMATION
  Report Type: 
  Country: None (occurrence: None)
  Receive Date: 20071025
  Receipt Date: 20071016
  Transmission Date: 20080405
  Serious: Yes (Other)
  Sender: FDA-Public Use
  Company Number: FR-AMGEN-US236928

PATIENT
  Age: 15 Year
  Sex: Female

DRUGS (2)
  1. ENBREL [Suspect]
     Indication: DRUG USE FOR UNKNOWN INDICATION
     Dosage: UNKNOWN
     Route: 058
     Dates: end: 20070101
  2. METHOTREXATE [Concomitant]
     Dosage: UNKNOWN
     Route: 048
     Dates: end: 20070101

REACTIONS (2)
  - NEUTROPENIA [None]
  - TRANSAMINASES INCREASED [None]
